FAERS Safety Report 9542446 (Version 5)
Quarter: 2014Q3

REPORT INFORMATION
  Report Type: Spontaneous
  Country: US (occurrence: None)
  Receive Date: 20130918
  Receipt Date: 20140812
  Transmission Date: 20150326
  Serious: Yes (Death, Hospitalization, Other)
  Sender: FDA-Public Use
  Company Number: 2013US002447

PATIENT
  Age: 83 Year
  Sex: Male

DRUGS (14)
  1. ICLUSIG [Suspect]
     Active Substance: PONATINIB
     Indication: CHRONIC MYELOID LEUKAEMIA
     Route: 048
     Dates: start: 201303, end: 20130328
  2. ALLOPURINOL. [Concomitant]
     Active Substance: ALLOPURINOL
  3. VITAMIN B12 (HYDROXOCOBALAMIN) [Concomitant]
  4. ASPIRIN. [Concomitant]
     Active Substance: ASPIRIN
  5. FISH OIL [Concomitant]
     Active Substance: FISH OIL
  6. MULTIVITAMIN (VITAMINS NOS) [Concomitant]
     Active Substance: VITAMINS
  7. DASATINIB [Concomitant]
     Active Substance: DASATINIB
  8. LISINOPRIL (LISINOPRIL DIHYDRATE) [Concomitant]
  9. MAGNESIUM (MAGNESIUM HYDROXIDE) [Concomitant]
  10. ALPRAZOLAM. [Concomitant]
     Active Substance: ALPRAZOLAM
  11. MARINOL [Concomitant]
     Active Substance: DRONABINOL
  12. LASIX [Concomitant]
     Active Substance: FUROSEMIDE
  13. BOSUTINIB [Concomitant]
     Active Substance: BOSUTINIB
  14. VITAMIN B6 [Concomitant]
     Active Substance: PYRIDOXINE HYDROCHLORIDE

REACTIONS (19)
  - Malignant neoplasm progression [None]
  - Fatigue [None]
  - Decreased appetite [None]
  - Liver injury [None]
  - Thrombocytopenia [None]
  - Pyrexia [None]
  - White blood cell count decreased [None]
  - Urinary tract infection [None]
  - Ascites [None]
  - Haemochromatosis [None]
  - Cholelithiasis [None]
  - Pleural effusion [None]
  - Weight decreased [None]
  - Failure to thrive [None]
  - Dyspnoea [None]
  - Toxicity to various agents [None]
  - Anaemia [None]
  - Dehydration [None]
  - Nausea [None]

NARRATIVE: CASE EVENT DATE: 201303
